FAERS Safety Report 9601954 (Version 1)
Quarter: 2013Q4

REPORT INFORMATION
  Report Type: Spontaneous
  Country: US (occurrence: None)
  Receive Date: 20131004
  Receipt Date: 20131004
  Transmission Date: 20140711
  Serious: Yes (Hospitalization)
  Sender: FDA-Public Use
  Company Number: None

PATIENT
  Age: 22 Year
  Sex: Female
  Weight: 66 kg

DRUGS (2)
  1. TRAMADOL [Suspect]
     Indication: HEADACHE
     Dosage: 2 TABLETS
     Route: 048
     Dates: start: 20130305
  2. ACYCLOVIR [Concomitant]

REACTIONS (2)
  - Grand mal convulsion [None]
  - Toxicologic test abnormal [None]
